FAERS Safety Report 6699886-X (Version None)
Quarter: 2010Q2

REPORT INFORMATION
  Report Type: 
  Country: None (occurrence: None)
  Receive Date: 20100427
  Receipt Date: 20100427
  Transmission Date: 20101027
  Serious: No
  Sender: FDA-Public Use
  Company Number: None

PATIENT
  Sex: Male
  Weight: 57.9 kg

DRUGS (3)
  1. CARBOPLATIN [Suspect]
     Dosage: 725 MG
  2. ERBITUX [Suspect]
     Dosage: 2094 MG
  3. TAXOL [Suspect]
     Dosage: 330 MG

REACTIONS (5)
  - ASTHENIA [None]
  - DEHYDRATION [None]
  - PNEUMONIA [None]
  - SPUTUM PURULENT [None]
  - WEIGHT DECREASED [None]
